FAERS Safety Report 8166913-2 (Version None)
Quarter: 2012Q1

REPORT INFORMATION
  Report Type: 
  Country: None (occurrence: None)
  Receive Date: 20120227
  Receipt Date: 20120208
  Transmission Date: 20120608
  Serious: Yes (Hospitalization)
  Sender: FDA-Public Use
  Company Number: US-ROCHE-GNE319740

PATIENT
  Sex: Female
  Weight: 84.444 kg

DRUGS (16)
  1. PERCOCET [Concomitant]
     Indication: PAIN
  2. ACETAMINOPHEN [Concomitant]
     Indication: PAIN
  3. IBUPROFEN [Concomitant]
     Indication: HEADACHE
  4. IBUPROFEN [Concomitant]
     Indication: PAIN
  5. OMALIZUMAB [Suspect]
     Indication: ASTHMA
     Dosage: 225 MG, Q2W
     Route: 058
     Dates: start: 20100922, end: 20110923
  6. VITAMIN AND MINERAL PRENATAL SUPPLEMENT W/ FOLIC ACID CAP [Concomitant]
     Indication: PREGNANCY
     Dosage: UNK
     Route: 048
     Dates: end: 20111001
  7. ZYFLO [Concomitant]
     Indication: ASTHMA
  8. PRILOSEC [Concomitant]
     Indication: GASTROOESOPHAGEAL REFLUX DISEASE
  9. CALCIUM CARBONATE [Concomitant]
     Indication: GASTROOESOPHAGEAL REFLUX DISEASE
     Dosage: UNK
  10. PATANASE NASAL SPRAY [Concomitant]
     Indication: HYPERSENSITIVITY
  11. ALBUTEROL INHALER [Concomitant]
     Indication: ASTHMA
     Dosage: UNK
  12. ZYRTEC [Concomitant]
     Indication: HYPERSENSITIVITY
     Dosage: UNK
  13. FOLIC ACID [Concomitant]
     Indication: PREGNANCY
     Dosage: UNK
     Dates: end: 20111001
  14. ACETAMINOPHEN [Concomitant]
     Indication: HEADACHE
     Dosage: UNK
  15. PULMICORT [Concomitant]
     Indication: ASTHMA
     Dosage: UNK
  16. SYMBICORT [Concomitant]
     Indication: ASTHMA

REACTIONS (3)
  - PREMATURE RUPTURE OF MEMBRANES [None]
  - MATERNAL EXPOSURE DURING PREGNANCY [None]
  - INFLUENZA [None]
